FAERS Safety Report 5276316-6 (Version None)
Quarter: 2007Q1

REPORT INFORMATION
  Report Type: 
  Country: None (occurrence: None)
  Receive Date: 20070326
  Receipt Date: 20070315
  Transmission Date: 20070707
  Serious: Yes (Other)
  Sender: FDA-Public Use
  Company Number: BR-PFIZER INC-2007018776

PATIENT
  Sex: Female

DRUGS (3)
  1. PROVERA [Suspect]
     Indication: AMENORRHOEA
     Dosage: FREQ:SINGLE DOSE
     Route: 048
     Dates: start: 20030701, end: 20030701
  2. ANTIBIOTICS [Concomitant]
     Dates: start: 20030101, end: 20030101
  3. ANALGESICS [Concomitant]
     Dates: start: 20030101, end: 20030101

REACTIONS (3)
  - BREAST PAIN [None]
  - BREAST SWELLING [None]
  - VASCULAR INJURY [None]
